FAERS Safety Report 23265858 (Version 1)
Quarter: 2023Q4

REPORT INFORMATION
  Report Type: Spontaneous
  Country: US (occurrence: US)
  Receive Date: 20231206
  Receipt Date: 20231206
  Transmission Date: 20240110
  Serious: Yes (Other)
  Sender: FDA-Public Use
  Company Number: US-ESPERIONTHERAPEUTICS-2023USA01344

PATIENT
  Sex: Female

DRUGS (3)
  1. NEXLETOL [Suspect]
     Active Substance: BEMPEDOIC ACID
     Indication: Drug intolerance
     Dosage: UNK
     Route: 065
  2. NEXLETOL [Suspect]
     Active Substance: BEMPEDOIC ACID
     Indication: Arteriosclerosis
  3. NEXLETOL [Suspect]
     Active Substance: BEMPEDOIC ACID
     Indication: Low density lipoprotein increased

REACTIONS (1)
  - Tachycardia [Recovering/Resolving]
